FAERS Safety Report 5630763-9 (Version None)
Quarter: 2008Q1

REPORT INFORMATION
  Report Type: 
  Country: None (occurrence: None)
  Receive Date: 20080219
  Receipt Date: 20080213
  Transmission Date: 20080703
  Serious: Yes (Other)
  Sender: FDA-Public Use
  Company Number: BR-ASTRAZENECA-2007UW25969

PATIENT
  Age: 36 Year
  Sex: Female
  Weight: 62 kg

DRUGS (3)
  1. ARIMIDEX [Suspect]
     Indication: BREAST CANCER
     Route: 048
     Dates: start: 20040101, end: 20070601
  2. XELODA [Suspect]
     Indication: BREAST CANCER
     Dosage: FIVE TABLETS DAILY
     Route: 048
     Dates: start: 20040101, end: 20070601
  3. AREDIA [Concomitant]
     Indication: BONE DENSITY DECREASED
     Route: 042
     Dates: start: 20040101

REACTIONS (6)
  - ASCITES [None]
  - CHEST PAIN [None]
  - DYSPNOEA [None]
  - METASTASES TO SPINE [None]
  - PERICARDIAL EFFUSION [None]
  - PERICARDIAL EFFUSION MALIGNANT [None]
